FAERS Safety Report 15666860 (Version 1)
Quarter: 2018Q4

REPORT INFORMATION
  Report Type: Spontaneous
  Country: US (occurrence: US)
  Receive Date: 20181128
  Receipt Date: 20181128
  Transmission Date: 20190205
  Serious: No
  Sender: FDA-Public Use
  Company Number: US-ROCHE-2126506

PATIENT
  Sex: Male

DRUGS (1)
  1. OCREVUS [Suspect]
     Active Substance: OCRELIZUMAB
     Indication: MULTIPLE SCLEROSIS
     Dosage: NEXT OCREVUS DOSE ON 22-MAY-2018-6 MONTH DOSE ;ONGOING: YES
     Route: 065

REACTIONS (1)
  - Gait disturbance [Not Recovered/Not Resolved]
